FAERS Safety Report 16094615 (Version 1)
Quarter: 2019Q1

REPORT INFORMATION
  Report Type: Spontaneous
  Country: ES (occurrence: ES)
  Receive Date: 20190320
  Receipt Date: 20190320
  Transmission Date: 20190418
  Serious: Yes (Other)
  Sender: FDA-Public Use
  Company Number: ES-BAYER-2019-022112

PATIENT
  Age: 75 Year

DRUGS (1)
  1. STIVARGA [Suspect]
     Active Substance: REGORAFENIB
     Dosage: 120 MG, UNK
     Dates: start: 20160108

REACTIONS (8)
  - Cholecystitis infective [None]
  - Palmar-plantar erythrodysaesthesia syndrome [None]
  - Intestinal obstruction [None]
  - Dysphonia [None]
  - Metastases to lung [None]
  - Hepatotoxicity [None]
  - Asthenia [None]
  - Pharyngeal inflammation [None]

NARRATIVE: CASE EVENT DATE: 20160328
